FAERS Safety Report 5397799-7 (Version None)
Quarter: 2007Q3

REPORT INFORMATION
  Report Type: 
  Country: None (occurrence: None)
  Receive Date: 20070723
  Receipt Date: 20070723
  Transmission Date: 20080115
  Serious: Yes (Hospitalization)
  Sender: FDA-Public Use
  Company Number: None

PATIENT
  Sex: Male
  Weight: 99.1 kg

DRUGS (1)
  1. TEMOZOLOMIDE [Suspect]
     Dosage: 2275 MG

REACTIONS (4)
  - DIZZINESS [None]
  - HEADACHE [None]
  - NUCLEAR MAGNETIC RESONANCE IMAGING ABNORMAL [None]
  - SYNCOPE [None]
